FAERS Safety Report 9498943 (Version 1)
Quarter: 2013Q3

REPORT INFORMATION
  Report Type: Spontaneous
  Country: NO (occurrence: NO)
  Receive Date: 20130904
  Receipt Date: 20130904
  Transmission Date: 20140515
  Serious: Yes (Other)
  Sender: FDA-Public Use
  Company Number: NO-TEVA-428925ISR

PATIENT
  Age: 56 Year
  Sex: Male

DRUGS (2)
  1. LOSARTAN [Suspect]
     Route: 048
  2. ATACAND PLUS [Concomitant]
     Route: 048

REACTIONS (2)
  - Retinal detachment [Not Recovered/Not Resolved]
  - Photosensitivity reaction [Recovered/Resolved]
